FAERS Safety Report 9716978 (Version 1)
Quarter: 2013Q4

REPORT INFORMATION
  Report Type: Spontaneous
  Country: US (occurrence: US)
  Receive Date: 20131127
  Receipt Date: 20131127
  Transmission Date: 20140711
  Serious: No
  Sender: FDA-Public Use
  Company Number: US-GILEAD-2009-0020126

PATIENT
  Age: 45 Year
  Sex: Female
  Weight: 72 kg

DRUGS (27)
  1. LETAIRIS [Suspect]
     Indication: PULMONARY ARTERIAL HYPERTENSION
     Route: 048
     Dates: start: 20081215, end: 20090128
  2. REVATIO [Concomitant]
     Route: 048
     Dates: start: 20090206
  3. VENTAVIS [Concomitant]
     Indication: PULMONARY ARTERIAL HYPERTENSION
     Route: 055
     Dates: start: 20071020
  4. LASIX [Concomitant]
     Dates: start: 20081222
  5. SPIRONOLACTONE [Concomitant]
     Route: 048
     Dates: start: 20071121
  6. CELLCEPT [Concomitant]
     Route: 048
     Dates: start: 20071121
  7. PREDNISONE [Concomitant]
     Route: 048
  8. CIPRO [Concomitant]
     Route: 048
  9. AMBIEN [Concomitant]
     Route: 048
     Dates: start: 20071121
  10. LEXAPRO [Concomitant]
     Route: 048
     Dates: start: 20071121
  11. CYANOCOBALAMIN [Concomitant]
     Route: 048
  12. NORCO [Concomitant]
     Route: 048
  13. LEVOXYL [Concomitant]
     Dates: start: 20071121
  14. PROTONIX [Concomitant]
     Route: 048
     Dates: start: 20071121
  15. ULTRAM [Concomitant]
     Route: 048
  16. MIRAPEX [Concomitant]
     Route: 048
  17. PLAQUENIL [Concomitant]
     Route: 048
     Dates: start: 20071121
  18. REQUIP [Concomitant]
     Route: 048
     Dates: start: 20080307
  19. ATIVAN [Concomitant]
     Indication: ANXIETY
     Route: 048
     Dates: start: 20071121
  20. VICODIN [Concomitant]
     Dates: start: 20071121
  21. TITRALAC [Concomitant]
     Dates: start: 20071121
  22. POTASSIUM CHLORIDE [Concomitant]
     Route: 048
  23. ROCALTROL [Concomitant]
     Route: 048
     Dates: start: 20071121
  24. FOLIC ACID [Concomitant]
     Route: 048
     Dates: start: 20071121
  25. ZINC SULFATE [Concomitant]
     Route: 048
     Dates: start: 20071121
  26. MAGNESIUM OXIDE [Concomitant]
     Dates: start: 20071121
  27. VITAMIN D [Concomitant]
     Route: 048

REACTIONS (4)
  - Liver function test abnormal [Unknown]
  - Swelling [Unknown]
  - Sinus congestion [Recovered/Resolved]
  - Oedema peripheral [Recovering/Resolving]
